FAERS Safety Report 19520734 (Version 1)
Quarter: 2021Q3

REPORT INFORMATION
  Report Type: Spontaneous
  Country: FR (occurrence: FR)
  Receive Date: 20210712
  Receipt Date: 20210712
  Transmission Date: 20211014
  Serious: Yes (Hospitalization)
  Sender: FDA-Public Use
  Company Number: NVSC2021FR148702

PATIENT
  Age: 44 Year
  Sex: Male

DRUGS (2)
  1. ZOPHREN [Suspect]
     Active Substance: ONDANSETRON
     Indication: PRODUCT USED FOR UNKNOWN INDICATION
     Dosage: UNK
     Route: 042
     Dates: start: 20181029, end: 20181029
  2. EXACYL [Suspect]
     Active Substance: TRANEXAMIC ACID
     Indication: SURGERY
     Dosage: UNK
     Route: 042
     Dates: start: 20181029, end: 20181029

REACTIONS (1)
  - Anaphylactic shock [Recovered/Resolved]

NARRATIVE: CASE EVENT DATE: 20181029
